FAERS Safety Report 11688085 (Version 11)
Quarter: 2019Q1

REPORT INFORMATION
  Report Type: Report from Study
  Country: US (occurrence: US)
  Receive Date: 20151030
  Receipt Date: 20190330
  Transmission Date: 20190417
  Serious: Yes (Other)
  Sender: FDA-Public Use
  Company Number: PHHY2015US072146

PATIENT
  Age: 39 Year
  Sex: Female

DRUGS (1)
  1. GILENYA [Suspect]
     Active Substance: FINGOLIMOD HYDROCHLORIDE
     Indication: MULTIPLE SCLEROSIS
     Dosage: UNK, QD
     Route: 048

REACTIONS (18)
  - Lymphocyte count decreased [Unknown]
  - Visual impairment [Unknown]
  - Aphasia [Recovered/Resolved]
  - Melanocytic naevus [Unknown]
  - Peroneal nerve palsy [Unknown]
  - Cafe au lait spots [Unknown]
  - Muscle spasms [Unknown]
  - Muscle spasticity [Recovered/Resolved]
  - Macule [Unknown]
  - Abdominal pain [Unknown]
  - Papule [Unknown]
  - Dyspepsia [Unknown]
  - Restless legs syndrome [Unknown]
  - Optic neuritis [Recovered/Resolved]
  - Vision blurred [Unknown]
  - Herpes zoster [Recovered/Resolved]
  - Initial insomnia [Unknown]
  - Dizziness [Recovered/Resolved]

NARRATIVE: CASE EVENT DATE: 20150420
